FAERS Safety Report 20470576 (Version 1)
Quarter: 2022Q1

REPORT INFORMATION
  Report Type: Spontaneous
  Country: US (occurrence: US)
  Receive Date: 20220214
  Receipt Date: 20220214
  Transmission Date: 20220424
  Serious: No
  Sender: FDA-Public Use
  Company Number: US-PFIZER INC-2021800715

PATIENT
  Age: 74 Year
  Sex: Female
  Weight: 104.33 kg

DRUGS (2)
  1. ZOLOFT [Suspect]
     Active Substance: SERTRALINE HYDROCHLORIDE
     Indication: Major depression
     Dosage: 100 MG, CYCLIC [ONCE A DAY THEN ALTERNATE THE NEXT DAY AND TAKE 200MG]
  2. ZOLOFT [Suspect]
     Active Substance: SERTRALINE HYDROCHLORIDE
     Indication: Pain

REACTIONS (5)
  - Drug ineffective [Unknown]
  - Intentional product misuse [Unknown]
  - Stress [Unknown]
  - Adrenal mass [Unknown]
  - Depression [Unknown]

NARRATIVE: CASE EVENT DATE: 20211101
